FAERS Safety Report 12876160 (Version 1)
Quarter: 2016Q4

REPORT INFORMATION
  Report Type: Spontaneous
  Country: US (occurrence: US)
  Receive Date: 20161024
  Receipt Date: 20161024
  Transmission Date: 20170207
  Serious: No
  Sender: FDA-Public Use
  Company Number: US-JAZZ-2016-US-015253

PATIENT
  Age: 65 Year
  Sex: Male
  Weight: 73.47 kg

DRUGS (15)
  1. ADVIL [Concomitant]
     Active Substance: IBUPROFEN
  2. CALCIUM WITH MAGNESIUM [Concomitant]
  3. DHEA [Concomitant]
     Active Substance: PRASTERONE
  4. VITAMIN D3 [Concomitant]
     Active Substance: CHOLECALCIFEROL
  5. XYREM [Suspect]
     Active Substance: SODIUM OXYBATE
     Indication: NARCOLEPSY
     Dosage: 1.25 G, BID
     Route: 048
     Dates: start: 20160806, end: 20160808
  6. XYREM [Suspect]
     Active Substance: SODIUM OXYBATE
     Dosage: 1.5 G, FIRST DOSE
     Route: 048
     Dates: start: 20160808, end: 201608
  7. VITAMIN C [Concomitant]
     Active Substance: ASCORBIC ACID
  8. FOLIC ACID. [Concomitant]
     Active Substance: FOLIC ACID
  9. XYREM [Suspect]
     Active Substance: SODIUM OXYBATE
     Dosage: 1.75 G, FIRST DOSE
     Route: 048
     Dates: start: 201608
  10. MULTIVITAMIN [Concomitant]
     Active Substance: VITAMINS
  11. XYREM [Suspect]
     Active Substance: SODIUM OXYBATE
     Dosage: 1 G, SECOND DOSE
     Route: 048
     Dates: start: 20160808, end: 201608
  12. XYREM [Suspect]
     Active Substance: SODIUM OXYBATE
     Dosage: 0.5 G, SECOND DOSE
     Route: 048
     Dates: start: 201608
  13. SELENIUM [Concomitant]
     Active Substance: SELENIUM
  14. VITAMIN B COMPLEX [Concomitant]
     Active Substance: CYANOCOBALAMIN\DEXPANTHENOL\NIACINAMIDE\PYRIDOXINE HYDROCHLORIDE\RIBOFLAVIN 5^-PHOSPHATE SODIUM\THIAMINE HYDROCHLORIDE\VITAMIN B COMPLEX
  15. VITAMIN E [Concomitant]
     Active Substance: .ALPHA.-TOCOPHEROL

REACTIONS (7)
  - Feeling abnormal [Unknown]
  - Burning sensation [Unknown]
  - Abnormal behaviour [Unknown]
  - Feeling abnormal [Not Recovered/Not Resolved]
  - Activities of daily living impaired [Not Recovered/Not Resolved]
  - Balance disorder [Not Recovered/Not Resolved]
  - Fatigue [Not Recovered/Not Resolved]

NARRATIVE: CASE EVENT DATE: 201608
